FAERS Safety Report 25944786 (Version 1)
Quarter: 2025Q4

REPORT INFORMATION
  Report Type: Spontaneous
  Country: US (occurrence: US)
  Receive Date: 20251021
  Receipt Date: 20251021
  Transmission Date: 20260118
  Serious: No
  Sender: Phathom Pharmaceuticals
  Company Number: US-PHATHOM PHARMACEUTICALS INC.-2025PHT01744

PATIENT
  Sex: Female

DRUGS (5)
  1. VOQUEZNA [Suspect]
     Active Substance: VONOPRAZAN FUMARATE
     Dosage: 10 MG, 1X/DAY
     Route: 048
     Dates: start: 20250506, end: 20250615
  2. CHLORDIAZEPOXIDE [Concomitant]
     Active Substance: CHLORDIAZEPOXIDE
  3. ATORVASTATIN [Concomitant]
     Active Substance: ATORVASTATIN
  4. METOPROLOL TARTRATE [Concomitant]
     Active Substance: METOPROLOL TARTRATE
  5. LOSARTAN [Concomitant]
     Active Substance: LOSARTAN

REACTIONS (3)
  - Fluid retention [Unknown]
  - Peripheral swelling [Unknown]
  - Erythema [Unknown]

NARRATIVE: CASE EVENT DATE: 20250101
